FAERS Safety Report 23989319 (Version 1)
Quarter: 2024Q2

REPORT INFORMATION
  Report Type: Other
  Country: AU (occurrence: AU)
  Receive Date: 20240619
  Receipt Date: 20240619
  Transmission Date: 20240716
  Serious: Yes (Death)
  Sender: FDA-Public Use
  Company Number: AU-ASTELLAS-2024US016849

PATIENT
  Age: 83 Year
  Sex: Female

DRUGS (7)
  1. MICAFUNGIN [Suspect]
     Active Substance: MICAFUNGIN SODIUM
     Indication: Candida infection
     Route: 042
  2. FLUCLOXACILLIN SODIUM [Suspect]
     Active Substance: FLUCLOXACILLIN SODIUM
     Indication: Respiratory syncytial virus infection
     Dosage: 2 G, EVERY 4 HOURS
     Route: 042
  3. FLUCLOXACILLIN SODIUM [Suspect]
     Active Substance: FLUCLOXACILLIN SODIUM
     Indication: Evidence based treatment
  4. FLUCLOXACILLIN SODIUM [Suspect]
     Active Substance: FLUCLOXACILLIN SODIUM
     Indication: Bacterial infection
  5. GENTAMICIN SULFATE [Suspect]
     Active Substance: GENTAMICIN SULFATE
     Indication: Respiratory syncytial virus infection
     Dosage: 182 MG, UNKNOWN FREQ. (SINGLE DOSE)
     Route: 042
  6. PIPERACILLIN SODIUM\TAZOBACTAM SODIUM [Suspect]
     Active Substance: PIPERACILLIN SODIUM\TAZOBACTAM SODIUM
     Indication: Respiratory syncytial virus infection
     Dosage: PIPERACILLIN/TAZOBACTAM:4 G- 0.5 G, EVERY 6 HOURS
     Route: 042
  7. FLUCONAZOLE [Suspect]
     Active Substance: FLUCONAZOLE
     Indication: Candida infection
     Dosage: 800 MG, UNKNOWN FREQ. (SINGLE DOSE)
     Route: 042

REACTIONS (2)
  - Therapy non-responder [Fatal]
  - Therapeutic product effect incomplete [Fatal]
